FAERS Safety Report 11598574 (Version 1)
Quarter: 2015Q3

REPORT INFORMATION
  Report Type: Spontaneous
  Country: US (occurrence: US)
  Receive Date: 20150916
  Receipt Date: 20150916
  Transmission Date: 20151125
  Serious: No
  Sender: FDA-Public Use
  Company Number: US-ELI_LILLY_AND_COMPANY-US200712001792

PATIENT
  Age: 76 Year
  Sex: Male

DRUGS (1)
  1. FORTEO [Suspect]
     Active Substance: TERIPARATIDE
     Indication: OSTEOPOROSIS
     Route: 058
     Dates: start: 20071206, end: 20071209

REACTIONS (3)
  - Pruritus [Recovering/Resolving]
  - Generalised erythema [Recovering/Resolving]
  - Injection site joint erythema [Recovering/Resolving]

NARRATIVE: CASE EVENT DATE: 20071207
